FAERS Safety Report 14364276 (Version 2)
Quarter: 2018Q1

REPORT INFORMATION
  Report Type: Spontaneous
  Country: GB (occurrence: GB)
  Receive Date: 20180108
  Receipt Date: 20180206
  Transmission Date: 20180509
  Serious: Yes (Death, Other)
  Sender: FDA-Public Use
  Company Number: GB-MYLANLABS-2018M1001693

PATIENT
  Age: 79 Year
  Sex: Male

DRUGS (2)
  1. RANOLAZINE. [Interacting]
     Active Substance: RANOLAZINE
     Indication: ANGINA PECTORIS
     Dosage: 750 MG, QD
     Route: 048
  2. CLARITHROMYCIN. [Suspect]
     Active Substance: CLARITHROMYCIN
     Indication: LOWER RESPIRATORY TRACT INFECTION
     Dosage: 1000 MG, QD
     Route: 048

REACTIONS (4)
  - Sudden death [Fatal]
  - Labelled drug-drug interaction medication error [Unknown]
  - Back pain [Not Recovered/Not Resolved]
  - Contraindicated product administered [Unknown]
